FAERS Safety Report 18818357 (Version 29)
Quarter: 2024Q4

REPORT INFORMATION
  Report Type: Report from Study
  Country: CO (occurrence: CO)
  Receive Date: 20210201
  Receipt Date: 20241101
  Transmission Date: 20250115
  Serious: Yes (Hospitalization, Other)
  Sender: TAKEDA
  Company Number: CO-TAKEDA-CO201719517

PATIENT
  Age: 14 Year
  Sex: Male
  Weight: 34 kg

DRUGS (6)
  1. IDURSULFASE [Suspect]
     Active Substance: IDURSULFASE
     Indication: Mucopolysaccharidosis II
     Dosage: UNK
     Route: 065
     Dates: start: 20100101
  2. IDURSULFASE [Suspect]
     Active Substance: IDURSULFASE
     Dosage: 20.5 MILLIGRAM
     Route: 042
  3. IDURSULFASE [Suspect]
     Active Substance: IDURSULFASE
     Dosage: 21 MILLIGRAM
     Route: 042
  4. IDURSULFASE [Suspect]
     Active Substance: IDURSULFASE
     Dosage: UNK UNK, 1/WEEK
     Route: 065
  5. IDURSULFASE [Suspect]
     Active Substance: IDURSULFASE
     Dosage: 24 MILLIGRAM, 1/WEEK
     Route: 042
  6. ENALAPRIL [Concomitant]
     Active Substance: ENALAPRIL
     Dosage: 5 MILLIGRAM
     Route: 048

REACTIONS (14)
  - Inguinal hernia [Recovered/Resolved]
  - Testicular torsion [Recovering/Resolving]
  - Product supply issue [Unknown]
  - Treatment noncompliance [Unknown]
  - Weight increased [Unknown]
  - Influenza [Recovering/Resolving]
  - Oxygen saturation decreased [Unknown]
  - Hypoaesthesia [Unknown]
  - Product availability issue [Unknown]
  - Product prescribing error [Unknown]
  - Inappropriate schedule of product administration [Unknown]
  - Incorrect dose administered [Unknown]
  - Arthralgia [Unknown]
  - Hypertension [Unknown]

NARRATIVE: CASE EVENT DATE: 20170731
